FAERS Safety Report 7183725-7 (Version None)
Quarter: 2010Q4

REPORT INFORMATION
  Report Type: 
  Country: None (occurrence: None)
  Receive Date: 20101220
  Receipt Date: 20101220
  Transmission Date: 20110411
  Serious: Yes (Hospitalization)
  Sender: FDA-Public Use
  Company Number: None

PATIENT
  Age: 33 Year
  Sex: Female
  Weight: 58.1 kg

DRUGS (4)
  1. ROPIVACAINE [Suspect]
     Indication: NERVE BLOCK
     Dosage: OTO SCALENE NERVE BLOCK RECENT
     Dates: start: 20100728
  2. TUMS [Concomitant]
  3. PHENERGAN [Concomitant]
  4. PERCOCET [Concomitant]

REACTIONS (2)
  - CONVULSION [None]
  - HEADACHE [None]
